FAERS Safety Report 11098043 (Version 1)
Quarter: 2015Q2

REPORT INFORMATION
  Report Type: Spontaneous
  Country: US (occurrence: US)
  Receive Date: 20150507
  Receipt Date: 20150507
  Transmission Date: 20150821
  Serious: Yes (Hospitalization)
  Sender: FDA-Public Use
  Company Number: US-OTSUKA PHARMACEUTICAL CO.-2015_000383

PATIENT
  Age: 64 Year
  Sex: Male

DRUGS (2)
  1. DACOGEN [Suspect]
     Active Substance: DECITABINE
     Indication: MYELODYSPLASTIC SYNDROME
     Dosage: 50 MG, QD
     Route: 042
  2. DACOGEN [Suspect]
     Active Substance: DECITABINE
     Dosage: 50 MG, 1 IN 1 DAY
     Route: 042

REACTIONS (1)
  - Pneumonia [Recovering/Resolving]
